FAERS Safety Report 5151717-5 (Version None)
Quarter: 2006Q4

REPORT INFORMATION
  Report Type: 
  Country: None (occurrence: None)
  Receive Date: 20061106
  Receipt Date: 20061025
  Transmission Date: 20070319
  Serious: No
  Sender: FDA-Public Use
  Company Number: HQWYE659505OCT06

PATIENT
  Age: 57 Year
  Sex: Male
  Weight: 63.56 kg

DRUGS (9)
  1. REFACTO [Suspect]
     Indication: FACTOR VIII DEFICIENCY
     Dosage: 1000-2000 IU UNITS, INTRAVENOUS
     Route: 042
     Dates: start: 20010101
  2. REYATAZ [Concomitant]
  3. RETROVIR [Concomitant]
  4. EPIVIR [Concomitant]
  5. NORVIR [Concomitant]
  6. PROPRANOLOL [Concomitant]
  7. VASOTEC [Concomitant]
  8. NEXIUM [Concomitant]
  9. BACTRIM DS (SULFAMETHOXAZOLE/TRIMTHOPRIM) [Concomitant]

REACTIONS (3)
  - ARTHRITIS [None]
  - DRUG EFFECT DECREASED [None]
  - INAPPROPRIATE SCHEDULE OF DRUG ADMINISTRATION [None]
